FAERS Safety Report 5823606-1 (Version None)
Quarter: 2008Q3

REPORT INFORMATION
  Report Type: 
  Country: None (occurrence: None)
  Receive Date: 20080725
  Receipt Date: 20080718
  Transmission Date: 20090109
  Serious: Yes (Other)
  Sender: FDA-Public Use
  Company Number: US-BOEHRINGER INGELHEIM GMBH, GERMANY-2008-DE-04177GD

PATIENT
  Sex: Male

DRUGS (3)
  1. ATROVENT [Suspect]
     Indication: ASTHMA
     Route: 055
  2. ALBUTEROL [Suspect]
     Indication: ASTHMA
     Route: 055
  3. ADVAIR DISKUS 100/50 [Suspect]
     Indication: ASTHMA

REACTIONS (1)
  - DRUG INEFFECTIVE [None]
